FAERS Safety Report 18212989 (Version 1)
Quarter: 2020Q3

REPORT INFORMATION
  Report Type: Spontaneous
  Country: US (occurrence: US)
  Receive Date: 20200829
  Receipt Date: 20200829
  Transmission Date: 20201103
  Serious: Yes (Other)
  Sender: FDA-Public Use
  Company Number: None

PATIENT
  Age: 64 Year
  Sex: Female
  Weight: 86.85 kg

DRUGS (9)
  1. CITALOPRAM [Concomitant]
     Active Substance: CITALOPRAM HYDROBROMIDE
  2. SIMVASTATIN. [Concomitant]
     Active Substance: SIMVASTATIN
  3. WELLBUTRIN [Concomitant]
     Active Substance: BUPROPION HYDROCHLORIDE
  4. BABY ASPIRIN [Concomitant]
     Active Substance: ASPIRIN
  5. FENTANYL. [Suspect]
     Active Substance: FENTANYL
  6. MIDAZOLAM. [Suspect]
     Active Substance: MIDAZOLAM
  7. LEVOTHYROXINE. [Concomitant]
     Active Substance: LEVOTHYROXINE
  8. TOPIRAMATE. [Concomitant]
     Active Substance: TOPIRAMATE
  9. METFORMIN [Concomitant]
     Active Substance: METFORMIN HYDROCHLORIDE

REACTIONS (13)
  - Gait disturbance [None]
  - Accidental overdose [None]
  - Loss of consciousness [None]
  - Malaise [None]
  - Feeling abnormal [None]
  - Migraine [None]
  - Emotional disorder [None]
  - Serotonin syndrome [None]
  - Memory impairment [None]
  - Incorrect dose administered [None]
  - Vomiting [None]
  - Insomnia [None]
  - Dehydration [None]

NARRATIVE: CASE EVENT DATE: 20200818
